FAERS Safety Report 11258020 (Version 9)
Quarter: 2016Q4

REPORT INFORMATION
  Report Type: Report from Study
  Country: JP (occurrence: JP)
  Receive Date: 20150710
  Receipt Date: 20161215
  Transmission Date: 20170206
  Serious: Yes (Life-Threatening, Hospitalization, Other)
  Sender: FDA-Public Use
  Company Number: PHJP2015JP011369

PATIENT
  Age: 5 Month
  Sex: Male

DRUGS (16)
  1. ACZ885 [Suspect]
     Active Substance: CANAKINUMAB
     Dosage: 30 MG, UNK
     Route: 058
     Dates: start: 20150804
  2. FUROSEMIDE. [Concomitant]
     Active Substance: FUROSEMIDE
     Indication: PRODUCT USED FOR UNKNOWN INDICATION
     Dosage: 6 MG, UNK
     Route: 048
  3. INCREMIN [Concomitant]
     Active Substance: FERRIC PYROPHOSPHATE
     Indication: IRON DEFICIENCY ANAEMIA
     Dosage: 3 ML, UNK
     Route: 048
  4. ACZ885 [Suspect]
     Active Substance: CANAKINUMAB
     Dosage: 18 MG, UNK
     Route: 058
     Dates: start: 20150706
  5. ALDACTONE [Concomitant]
     Active Substance: SPIRONOLACTONE
     Indication: PRODUCT USED FOR UNKNOWN INDICATION
     Dosage: 6 MG, UNK
     Route: 048
  6. BIOFERMIN R [Concomitant]
     Active Substance: BACILLUS SUBTILIS\LACTOBACILLUS ACIDOPHILUS\STREPTOCOCCUS FAECAIS
     Indication: DIARRHOEA
     Dosage: 0.5 G, UNK
     Route: 048
  7. ACZ885 [Suspect]
     Active Substance: CANAKINUMAB
     Dosage: 33 MG, UNK
     Route: 058
     Dates: start: 20151013
  8. GLUCONSAN K [Concomitant]
     Indication: HYPOKALAEMIA
     Dosage: 0.3 G, UNK
     Route: 048
  9. ACZ885 [Suspect]
     Active Substance: CANAKINUMAB
     Dosage: 30 MG, UNK
     Route: 058
     Dates: start: 20150914
  10. ACZ885 [Suspect]
     Active Substance: CANAKINUMAB
     Indication: CHRONIC INFANTILE NEUROLOGICAL CUTANEOUS AND ARTICULAR SYNDROME
     Dosage: UNK
     Route: 058
     Dates: start: 20150127
  11. ACZ885 [Suspect]
     Active Substance: CANAKINUMAB
     Dosage: 2 MG/KG, QD
     Route: 058
     Dates: start: 201502
  12. ADCIRCA [Concomitant]
     Active Substance: TADALAFIL
     Indication: TRANSPOSITION OF THE GREAT VESSELS
     Dosage: 3.6 MG, UNK
     Route: 048
  13. PULMICORT TURBUHALER [Concomitant]
     Active Substance: BUDESONIDE
     Indication: PRODUCT USED FOR UNKNOWN INDICATION
     Dosage: 0.5 MG, UNK
     Route: 055
     Dates: start: 20150911
  14. PREVENAR [Concomitant]
     Active Substance: PNEUMOCOCCAL 7-VALENT CONJUGATE VACCINE (DIPHTHERIA CRM197 PROTEIN)
     Indication: PRODUCT USED FOR UNKNOWN INDICATION
     Dosage: UNK
     Route: 065
     Dates: start: 20150701
  15. DIPYRIDAMOLE. [Concomitant]
     Active Substance: DIPYRIDAMOLE
     Indication: PRODUCT USED FOR UNKNOWN INDICATION
     Dosage: 8 MG, UNK
     Route: 048
  16. SOTACOR [Concomitant]
     Active Substance: SOTALOL HYDROCHLORIDE
     Indication: PRODUCT USED FOR UNKNOWN INDICATION
     Dosage: 8 MG, UNK
     Route: 048

REACTIONS (9)
  - Pneumonia [Recovering/Resolving]
  - Drug administered to patient of inappropriate age [Unknown]
  - Atelectasis [Recovering/Resolving]
  - Bronchitis [Recovering/Resolving]
  - Diarrhoea [Not Recovered/Not Resolved]
  - Asthma [Recovering/Resolving]
  - Pyrexia [Unknown]
  - Oxygen saturation decreased [Unknown]
  - C-reactive protein increased [Recovered/Resolved]

NARRATIVE: CASE EVENT DATE: 201502
